FAERS Safety Report 9835159 (Version 1)
Quarter: 2014Q1

REPORT INFORMATION
  Report Type: Spontaneous
  Country: US (occurrence: US)
  Receive Date: 20140122
  Receipt Date: 20140122
  Transmission Date: 20141002
  Serious: Yes (Other)
  Sender: FDA-Public Use
  Company Number: US-BRISTOL-MYERS SQUIBB COMPANY-19835586

PATIENT
  Age: 78 Year
  Sex: Male
  Weight: 87.07 kg

DRUGS (1)
  1. ELIQUIS [Suspect]
     Indication: ATRIAL FIBRILLATION
     Dosage: LAST DOSE:03NOV13
     Dates: start: 20131031

REACTIONS (1)
  - Dyspnoea [Unknown]
